FAERS Safety Report 21740096 (Version 1)
Quarter: 2022Q4

REPORT INFORMATION
  Report Type: Spontaneous
  Country: US (occurrence: None)
  Receive Date: 20221215
  Receipt Date: 20221215
  Transmission Date: 20230113
  Serious: Yes (Hospitalization)
  Sender: FDA-Public Use
  Company Number: None

PATIENT
  Age: 75 Year
  Sex: Female
  Weight: 67 kg

DRUGS (1)
  1. TECLISTAMAB [Suspect]
     Active Substance: TECLISTAMAB
     Indication: Plasma cell myeloma
     Dosage: OTHER FREQUENCY : ONCE;?
     Route: 058
     Dates: start: 20221208, end: 20221215

REACTIONS (9)
  - Pyrexia [None]
  - Chills [None]
  - Night sweats [None]
  - Dyspnoea [None]
  - Cough [None]
  - Hypoxia [None]
  - Tachycardia [None]
  - Pulmonary oedema [None]
  - Cytokine release syndrome [None]

NARRATIVE: CASE EVENT DATE: 20221213
